FAERS Safety Report 11485322 (Version 1)
Quarter: 2015Q3

REPORT INFORMATION
  Report Type: Spontaneous
  Country: US (occurrence: None)
  Receive Date: 20150909
  Receipt Date: 20150909
  Transmission Date: 20151125
  Serious: Yes (Disabling)
  Sender: FDA-Public Use
  Company Number: None

PATIENT
  Age: 60 Year
  Sex: Female
  Weight: 58.97 kg

DRUGS (14)
  1. BIOTIN [Concomitant]
     Active Substance: BIOTIN
  2. PROGESTERONE. [Concomitant]
     Active Substance: PROGESTERONE
  3. ESTROGEN [Concomitant]
     Active Substance: ESTRONE\SUS SCROFA OVARY
  4. FISH OIL [Concomitant]
     Active Substance: FISH OIL
  5. VITAMIN D [Concomitant]
     Active Substance: CHOLECALCIFEROL
  6. VITAMIN E [Concomitant]
     Active Substance: .ALPHA.-TOCOPHEROL
  7. ESTROGEN PATCH .025 MG MYLAN [Suspect]
     Active Substance: ESTRADIOL
     Indication: PROPHYLAXIS
     Dosage: Q3D, APPLIED AS MEDICATED PATCH TO SKIN
  8. ESTROGEN PATCH 0.25 SANDOZ [Suspect]
     Active Substance: ESTRADIOL
     Indication: MENOPAUSAL SYMPTOMS
     Dosage: Q3D APPLIED AS MEDICATED PATCH TO SKIN
  9. ESTER C [Concomitant]
  10. ESTROGEN PATCH 0.25 SANDOZ [Suspect]
     Active Substance: ESTRADIOL
     Indication: PROPHYLAXIS
     Dosage: Q3D APPLIED AS MEDICATED PATCH TO SKIN
  11. ASPIRIN. [Concomitant]
     Active Substance: ASPIRIN
  12. ESTROGEN PATCH .025 MG MYLAN [Suspect]
     Active Substance: ESTRADIOL
     Indication: MENOPAUSAL SYMPTOMS
     Dosage: Q3D, APPLIED AS MEDICATED PATCH TO SKIN
  13. LEVOTHYROXINE. [Concomitant]
     Active Substance: LEVOTHYROXINE
  14. VITAMIN A [Concomitant]
     Active Substance: VITAMIN A

REACTIONS (4)
  - Headache [None]
  - Neck pain [None]
  - Product substitution issue [None]
  - Product quality issue [None]
